FAERS Safety Report 21116846 (Version 1)
Quarter: 2022Q3

REPORT INFORMATION
  Report Type: Spontaneous
  Country: GB (occurrence: GB)
  Receive Date: 20220722
  Receipt Date: 20220722
  Transmission Date: 20221027
  Serious: Yes (Death)
  Sender: FDA-Public Use
  Company Number: GB-TEVA-2022-GB-2055896

PATIENT
  Age: 15 Month
  Sex: Female

DRUGS (10)
  1. CARBOPLATIN [Suspect]
     Active Substance: CARBOPLATIN
     Indication: Glioma
     Dosage: BBSFOP CHEMOTHERAPY; 450 MG/M2/D IN A 1H INFUSION ON DAY 1
     Route: 050
  2. ETOPOSIDE [Suspect]
     Active Substance: ETOPOSIDE
     Indication: Glioma
     Dosage: BBSFOP CHEMOTHERAPY; 150 MG/M2/D IN A 1H INFUSION ON DAYS 22 AND 23
     Route: 050
  3. CISPLATIN [Suspect]
     Active Substance: CISPLATIN
     Indication: Glioma
     Dosage: BBSFOP CHEMOTHERAPY; 30 MG/M2/D IN A 3H INFUSION ON DAYS 22 AND 23
     Route: 050
  4. VINCRISTINE [Suspect]
     Active Substance: VINCRISTINE
     Indication: Glioma
     Dosage: BBSFOP CHEMOTHERAPY; 1.5 MG/M2/D ON DAY 43
     Route: 040
  5. PROCARBAZINE [Suspect]
     Active Substance: PROCARBAZINE
     Indication: Glioma
     Dosage: 4 MG/KG DAILY; BBSFOP CHEMOTHERAPY; 120 MG/M2/D ON DAYS 1-7
     Route: 048
  6. CYCLOPHOSPHAMIDE [Suspect]
     Active Substance: CYCLOPHOSPHAMIDE
     Indication: Glioma
     Dosage: 50 MG/KG DAILY; BBSFOP CHEMOTHERAPY; 1500 MG/M2 IN A 1H INFUSION WITH HYDRATION
     Route: 050
  7. TEMOZOLOMIDE [Suspect]
     Active Substance: TEMOZOLOMIDE
     Indication: Glioma
     Route: 065
  8. MANNITOL [Concomitant]
     Active Substance: MANNITOL
     Indication: Product used for unknown indication
     Dosage: 3H INFUSION ON DAYS 22 AND 23 WITH CISPLATIN
     Route: 050
  9. SALINE [Concomitant]
     Active Substance: SODIUM CHLORIDE
     Indication: Product used for unknown indication
     Dosage: 3H INFUSION ON DAYS 22 AND 23 WITH CISPLATIN
     Route: 050
  10. MESNA [Concomitant]
     Active Substance: MESNA
     Indication: Product used for unknown indication
     Dosage: IN A 1H INFUSION WITH CYCLOPHOSPHAMIDE ON DAY 43
     Route: 050

REACTIONS (1)
  - Drug ineffective [Fatal]
